FAERS Safety Report 4588517-0 (Version None)
Quarter: 2005Q1

REPORT INFORMATION
  Report Type: 
  Country: None (occurrence: None)
  Receive Date: 20050216
  Receipt Date: 20050216
  Transmission Date: 20050727
  Serious: Yes (Other)
  Sender: FDA-Public Use
  Company Number: None

PATIENT
  Sex: Female
  Weight: 68.0396 kg

DRUGS (8)
  1. CELEBREX [Suspect]
     Indication: INTERVERTEBRAL DISC DEGENERATION
     Dosage: 200MG  BID   ORAL
     Route: 048
     Dates: start: 19990701, end: 20021001
  2. BEXTRA [Suspect]
     Indication: INTERVERTEBRAL DISC DEGENERATION
     Dosage: 20MG  QD   ORAL
     Route: 048
     Dates: start: 20021001, end: 20040208
  3. AMOXICILLIN [Concomitant]
  4. LEVOXYL [Concomitant]
  5. CENESTIN [Concomitant]
  6. IBUPROFEN [Concomitant]
  7. CALCIUM WITH MINERALS [Concomitant]
  8. OCCUTABS [Concomitant]

REACTIONS (5)
  - BLOOD PRESSURE DIASTOLIC INCREASED [None]
  - BRAIN NATRIURETIC PEPTIDE INCREASED [None]
  - HEART RATE DECREASED [None]
  - PAIN [None]
  - PITTING OEDEMA [None]
